FAERS Safety Report 9669638 (Version 3)
Quarter: 2013Q4

REPORT INFORMATION
  Report Type: Report from Study
  Country: DE (occurrence: DE)
  Receive Date: 20131105
  Receipt Date: 20131124
  Transmission Date: 20140711
  Serious: Yes (Death, Hospitalization)
  Sender: FDA-Public Use
  Company Number: DE-ROCHE-1288800

PATIENT
  Age: 62 Year
  Sex: Female
  Weight: 60 kg

DRUGS (3)
  1. TRASTUZUMAB EMTANSINE [Suspect]
     Indication: BREAST CANCER
     Route: 042
     Dates: start: 20130404, end: 20130924
  2. METOCLOPRAMID [Concomitant]
     Indication: NAUSEA
     Route: 048
     Dates: start: 20130410, end: 201309
  3. NOVAMINSULFON [Concomitant]
     Indication: PAIN
     Route: 065
     Dates: start: 20130606, end: 201309

REACTIONS (3)
  - Multi-organ failure [Fatal]
  - Metastases to liver [Fatal]
  - Subileus [Fatal]
